FAERS Safety Report 4608938-7 (Version None)
Quarter: 2005Q1

REPORT INFORMATION
  Report Type: 
  Country: None (occurrence: None)
  Receive Date: 20050311
  Receipt Date: 20050303
  Transmission Date: 20050727
  Serious: Yes (Life-Threatening)
  Sender: FDA-Public Use
  Company Number: HQWYE876108MAR05

PATIENT
  Age: 62 Year
  Sex: Female

DRUGS (3)
  1. EFFEXOR [Suspect]
     Indication: DEPRESSION
     Dosage: 300 MG 1X PER 1 DAY
     Route: 048
     Dates: start: 20020101
  2. LITHIUM [Concomitant]
  3. SEROQUEL [Concomitant]

REACTIONS (3)
  - ENCEPHALOPATHY [None]
  - GAIT DISTURBANCE [None]
  - MUSCLE TWITCHING [None]
